FAERS Safety Report 16416691 (Version 1)
Quarter: 2019Q2

REPORT INFORMATION
  Report Type: Spontaneous
  Country: US (occurrence: US)
  Receive Date: 20190503
  Receipt Date: 20190503
  Transmission Date: 20190711
  Serious: Yes (Other)
  Sender: FDA-Public Use
  Company Number: None

PATIENT
  Age: 36 Year
  Sex: Female

DRUGS (2)
  1. MAKENA [Suspect]
     Active Substance: HYDROXYPROGESTERONE CAPROATE
     Indication: PREMATURE LABOUR
     Route: 058
     Dates: start: 20190416
  2. PRENATAL VITAMINS [Concomitant]
     Active Substance: VITAMINS

REACTIONS (1)
  - Abortion spontaneous [None]

NARRATIVE: CASE EVENT DATE: 201904
